FAERS Safety Report 23054950 (Version 3)
Quarter: 2023Q4

REPORT INFORMATION
  Report Type: Report from Study
  Country: US (occurrence: US)
  Receive Date: 20231011
  Receipt Date: 20231101
  Transmission Date: 20240110
  Serious: Yes (Death, Life-Threatening, Hospitalization)
  Sender: FDA-Public Use
  Company Number: US-Eisai Medical Research-EC-2021-101900

PATIENT
  Age: 82 Year
  Sex: Female
  Weight: 71.8 kg

DRUGS (18)
  1. LENVATINIB [Suspect]
     Active Substance: LENVATINIB
     Indication: Pancreatic carcinoma
     Route: 048
     Dates: start: 20210624, end: 20210710
  2. LENVATINIB [Suspect]
     Active Substance: LENVATINIB
     Route: 048
     Dates: start: 20210723, end: 20211027
  3. PEMBROLIZUMAB [Suspect]
     Active Substance: PEMBROLIZUMAB
     Indication: Pancreatic carcinoma
     Route: 041
     Dates: start: 20210624, end: 20210715
  4. PEMBROLIZUMAB [Suspect]
     Active Substance: PEMBROLIZUMAB
     Route: 041
     Dates: start: 20210805, end: 20211007
  5. BENAZEPRIL HYDROCHLORIDE [Concomitant]
     Active Substance: BENAZEPRIL HYDROCHLORIDE
     Dates: start: 20210709, end: 20210722
  6. ALBUTEROL [Concomitant]
     Active Substance: ALBUTEROL
     Dates: start: 20210122
  7. OXYGEN [Concomitant]
     Active Substance: OXYGEN
     Dates: start: 20210608
  8. AMLODIPINE [Concomitant]
     Active Substance: AMLODIPINE BESYLATE
     Dates: start: 20210715, end: 20210801
  9. CALCIUM [Concomitant]
     Active Substance: CALCIUM
     Dates: start: 20150121, end: 20211031
  10. AZELASTINE HYDROCHLORIDE [Concomitant]
     Active Substance: AZELASTINE HYDROCHLORIDE
     Dates: start: 20190304, end: 20211029
  11. VANCOMYCIN [Concomitant]
     Active Substance: VANCOMYCIN
     Dates: start: 20201101, end: 20211101
  12. ATIVAN [Concomitant]
     Active Substance: LORAZEPAM
     Dates: start: 20201217, end: 20211103
  13. EMLA [Concomitant]
     Active Substance: LIDOCAINE\PRILOCAINE
     Dates: start: 20201217
  14. APIXABAN [Concomitant]
     Active Substance: APIXABAN
     Dates: start: 20210330, end: 20211021
  15. DULERA [Concomitant]
     Active Substance: FORMOTEROL FUMARATE DIHYDRATE\MOMETASONE FUROATE
     Dates: start: 20210330
  16. CREON [Concomitant]
     Active Substance: PANCRELIPASE AMYLASE\PANCRELIPASE LIPASE\PANCRELIPASE PROTEASE
     Dates: start: 20210401, end: 20211101
  17. PEPCID [Concomitant]
     Active Substance: FAMOTIDINE
     Dates: start: 20210412, end: 20211101
  18. TYLENOL [Concomitant]
     Active Substance: ACETAMINOPHEN
     Dates: start: 20210715

REACTIONS (4)
  - Pneumothorax [Recovered/Resolved]
  - Acute respiratory failure [Fatal]
  - Dyspnoea [Not Recovered/Not Resolved]
  - Malignant neoplasm progression [Not Recovered/Not Resolved]

NARRATIVE: CASE EVENT DATE: 20210716
